FAERS Safety Report 10266300 (Version 1)
Quarter: 2014Q2

REPORT INFORMATION
  Report Type: Other
  Country: GB (occurrence: GB)
  Receive Date: 20140627
  Receipt Date: 20140627
  Transmission Date: 20141212
  Serious: Yes (Other)
  Sender: FDA-Public Use
  Company Number: GB-TAKEDA-2014TJP008201

PATIENT
  Age: 65 Year
  Sex: Female
  Weight: 65 kg

DRUGS (6)
  1. LANSOPRAZOLE [Suspect]
     Indication: GASTROOESOPHAGEAL REFLUX DISEASE
     Dosage: 15 MG, BID
     Route: 048
     Dates: start: 201402, end: 20140526
  2. ASPIRIN [Concomitant]
  3. CO-CODAMOL [Concomitant]
  4. N-ACETYLCYSTEINE [Concomitant]
  5. OMEPRAZOLE [Concomitant]
  6. PIRFENIDONE [Concomitant]

REACTIONS (1)
  - Diarrhoea [Recovered/Resolved]
